FAERS Safety Report 23765283 (Version 3)
Quarter: 2024Q2

REPORT INFORMATION
  Report Type: Report from Study
  Country: NL (occurrence: NL)
  Receive Date: 20240420
  Receipt Date: 20240623
  Transmission Date: 20240716
  Serious: Yes (Life-Threatening, Hospitalization)
  Sender: FDA-Public Use
  Company Number: NL-ABBVIE-5726230

PATIENT
  Sex: Male

DRUGS (10)
  1. CARBIDOPA\LEVODOPA [Suspect]
     Active Substance: CARBIDOPA\LEVODOPA
     Indication: Parkinson^s disease
     Dosage: END: 1.5ML NCD: 3.6ML?REMAINS AT 24 HOURS
     Route: 050
     Dates: start: 20231109, end: 20231208
  2. CARBIDOPA\LEVODOPA [Suspect]
     Active Substance: CARBIDOPA\LEVODOPA
     Dosage: CD: 4.8ML NCD: 3.6ML?REMAINS AT 24 HOURS
     Route: 050
     Dates: start: 20230809, end: 20231006
  3. CARBIDOPA\LEVODOPA [Suspect]
     Active Substance: CARBIDOPA\LEVODOPA
     Route: 050
  4. CARBIDOPA\LEVODOPA [Suspect]
     Active Substance: CARBIDOPA\LEVODOPA
     Dosage: MD 6.5 ML; CD 4.8 ML/H; ED 1.5 ML?REMAINS AT 24 HOURS
     Route: 050
     Dates: start: 20231208
  5. CARBIDOPA\LEVODOPA [Suspect]
     Active Substance: CARBIDOPA\LEVODOPA
     Dosage: NCD: 3.6ML?REMAINS AT 24 HOURS
     Route: 050
     Dates: start: 20231006, end: 20231109
  6. CARBIDOPA\LEVODOPA [Suspect]
     Active Substance: CARBIDOPA\LEVODOPA
     Dosage: LAST ADMIN DATE: 2023?REMAINS AT 24 HOURS
     Route: 050
     Dates: start: 20230104
  7. GALANTAMINE [Concomitant]
     Active Substance: GALANTAMINE
     Indication: Product used for unknown indication
     Route: 048
  8. LEVODOPA/CARBIDOPA PCH [Concomitant]
     Indication: Product used for unknown indication
     Dosage: 100/25MG 1 PIECE, FOR THE NIGHT, AFTER 11 PM
  9. PRAMIPEXOLE [Concomitant]
     Active Substance: PRAMIPEXOLE\PRAMIPEXOLE DIHYDROCHLORIDE
     Indication: Product used for unknown indication
  10. SINEMET [Concomitant]
     Active Substance: CARBIDOPA\LEVODOPA
     Indication: Product used for unknown indication
     Dosage: 100/25MG?FREQUENCY TEXT: FIVE TIMES A DAY TWO TABLETS
     Route: 065

REACTIONS (12)
  - Suicide attempt [Recovered/Resolved]
  - Unevaluable event [Not Recovered/Not Resolved]
  - Mental disorder [Not Recovered/Not Resolved]
  - Decreased appetite [Recovered/Resolved]
  - Hallucination [Unknown]
  - Reduced facial expression [Not Recovered/Not Resolved]
  - Taste disorder [Recovering/Resolving]
  - Tremor [Not Recovered/Not Resolved]
  - Bradykinesia [Not Recovered/Not Resolved]
  - Obsessive-compulsive disorder [Unknown]
  - Device kink [Not Recovered/Not Resolved]
  - Gastrointestinal disorder [Not Recovered/Not Resolved]

NARRATIVE: CASE EVENT DATE: 20240401
